FAERS Safety Report 20354038 (Version 2)
Quarter: 2022Q1

REPORT INFORMATION
  Report Type: Spontaneous
  Country: BR (occurrence: None)
  Receive Date: 20220120
  Receipt Date: 20220208
  Transmission Date: 20220423
  Serious: Yes (Death, Hospitalization, Other)
  Sender: FDA-Public Use
  Company Number: BR-ROCHE-2999331

PATIENT
  Age: 69 Year
  Sex: Male
  Weight: 49 kg

DRUGS (5)
  1. AVASTIN [Suspect]
     Active Substance: BEVACIZUMAB
     Indication: Hepatocellular carcinoma
     Route: 042
     Dates: start: 20210301, end: 20210922
  2. AVASTIN [Suspect]
     Active Substance: BEVACIZUMAB
     Route: 042
  3. TECENTRIQ [Suspect]
     Active Substance: ATEZOLIZUMAB
     Indication: Hepatocellular carcinoma
     Route: 041
     Dates: start: 20210301, end: 20210922
  4. LEVOTHYROXINE [Concomitant]
     Active Substance: LEVOTHYROXINE
     Indication: Hypothyroidism
  5. LEVOTHYROXINE [Concomitant]
     Active Substance: LEVOTHYROXINE

REACTIONS (13)
  - Hepatocellular carcinoma [Fatal]
  - Back pain [Unknown]
  - Abdominal pain [Unknown]
  - Decreased appetite [Unknown]
  - Malaise [Unknown]
  - Ascites [Unknown]
  - Renal failure [Unknown]
  - Hepatic failure [Unknown]
  - Pneumonia [Unknown]
  - Generalised oedema [Unknown]
  - Hypothyroidism [Unknown]
  - Rash [Recovering/Resolving]
  - Localised infection [Unknown]

NARRATIVE: CASE EVENT DATE: 20211011
